FAERS Safety Report 5632550-4 (Version None)
Quarter: 2008Q1

REPORT INFORMATION
  Report Type: 
  Country: None (occurrence: None)
  Receive Date: 20080220
  Receipt Date: 20071101
  Transmission Date: 20080703
  Serious: Yes (Other)
  Sender: FDA-Public Use
  Company Number: US-PFIZER INC-2007094183

PATIENT
  Sex: Female
  Weight: 44 kg

DRUGS (2)
  1. CHANTIX [Suspect]
     Indication: SMOKING CESSATION THERAPY
     Route: 048
  2. NEURONTIN [Concomitant]
     Route: 048

REACTIONS (2)
  - BEDRIDDEN [None]
  - WEIGHT BEARING DIFFICULTY [None]
